FAERS Safety Report 8017856-6 (Version None)
Quarter: 2012Q1

REPORT INFORMATION
  Report Type: 
  Country: None (occurrence: None)
  Receive Date: 20120103
  Receipt Date: 20111223
  Transmission Date: 20120608
  Serious: No
  Sender: FDA-Public Use
  Company Number: US-PFIZER INC-2011313945

PATIENT
  Sex: Female

DRUGS (1)
  1. SEPTRA [Suspect]

REACTIONS (1)
  - DRUG HYPERSENSITIVITY [None]
